FAERS Safety Report 4754463-2 (Version None)
Quarter: 2005Q3

REPORT INFORMATION
  Report Type: 
  Country: None (occurrence: None)
  Receive Date: 20050825
  Receipt Date: 20050822
  Transmission Date: 20060218
  Serious: Yes (Life-Threatening)
  Sender: FDA-Public Use
  Company Number: 216259

PATIENT
  Age: 41 Year
  Sex: Female
  Weight: 43 kg

DRUGS (6)
  1. MABTHERA (RITUXIMAB) CONC FOR SOLUTION FOR INFUSION [Suspect]
     Indication: NON-HODGKIN'S LYMPHOMA
     Dosage: 500 MG, 1/WEEK, INTRAVENOUS
     Route: 042
     Dates: start: 20010601, end: 20010621
  2. ETOPOSIDE [Suspect]
     Indication: NON-HODGKIN'S LYMPHOMA
     Dosage: 100 MG/M2, UNK, INTRAVENOUS
     Route: 042
     Dates: start: 19901001
  3. CYCLOPHOSPHAMIDE [Suspect]
     Indication: NON-HODGKIN'S LYMPHOMA
     Dosage: 600 MG/M2, UNK, INTRAVENOUS SEE IMAGE
     Route: 042
     Dates: end: 19940101
  4. CYCLOPHOSPHAMIDE [Suspect]
     Indication: NON-HODGKIN'S LYMPHOMA
     Dosage: 600 MG/M2, UNK, INTRAVENOUS SEE IMAGE
     Route: 042
     Dates: start: 19901001
  5. CHLORAMINOPHENE(CHLORAMBUCIL) [Suspect]
     Indication: NON-HODGKIN'S LYMPHOMA
     Dosage: 5 TABLET, QDX5D/28DC, ORAL
     Route: 048
     Dates: start: 19990401, end: 20000401
  6. ADRIABLASTINE(DOXORUBICIN, DOXORUBICIN HYDROCHLORIDE) [Suspect]
     Indication: NON-HODGKIN'S LYMPHOMA
     Dosage: 25 MG/M2, INTRAVENOUS
     Route: 042
     Dates: start: 19901001

REACTIONS (5)
  - ADENOCARCINOMA [None]
  - DIFFUSE LARGE B-CELL LYMPHOMA RECURRENT [None]
  - METASTASES TO LYMPH NODES [None]
  - NEOPLASM RECURRENCE [None]
  - NON-HODGKIN'S LYMPHOMA [None]
